FAERS Safety Report 11151795 (Version 3)
Quarter: 2015Q2

REPORT INFORMATION
  Report Type: Report from Study
  Country: FR (occurrence: FR)
  Receive Date: 20150601
  Receipt Date: 20150630
  Transmission Date: 20150821
  Serious: Yes (Death, Hospitalization, Other)
  Sender: FDA-Public Use
  Company Number: FR-GLAXOSMITHKLINE-FR2015GSK073609

PATIENT
  Age: 28 Year
  Sex: Female

DRUGS (3)
  1. DABRAFENIB [Suspect]
     Active Substance: DABRAFENIB
     Indication: MALIGNANT MELANOMA
     Dosage: 150 MG, BID
     Route: 048
     Dates: start: 20141022
  2. TRAMETINIB [Suspect]
     Active Substance: TRAMETINIB
     Indication: MALIGNANT MELANOMA
     Dosage: 2 MG, 1D
     Route: 048
     Dates: start: 20141022
  3. MEDI4736 [Suspect]
     Active Substance: DURVALUMAB
     Indication: MALIGNANT MELANOMA
     Dosage: 10 MG/KG, CYC
     Dates: start: 20141022

REACTIONS (2)
  - Malignant neoplasm progression [Fatal]
  - Eye oedema [Not Recovered/Not Resolved]

NARRATIVE: CASE EVENT DATE: 20150511
